APPROVED DRUG PRODUCT: PARICALCITOL
Active Ingredient: PARICALCITOL
Strength: 2MCG
Dosage Form/Route: CAPSULE;ORAL
Application: A202124 | Product #002 | TE Code: AB
Applicant: RISING PHARMA HOLDINGS INC
Approved: Jun 24, 2014 | RLD: No | RS: No | Type: RX